FAERS Safety Report 10088804 (Version 1)
Quarter: 2014Q2

REPORT INFORMATION
  Report Type: Spontaneous
  Country: US (occurrence: US)
  Receive Date: 20140421
  Receipt Date: 20140421
  Transmission Date: 20141212
  Serious: Yes (Other)
  Sender: FDA-Public Use
  Company Number: US-ROCHE-1384560

PATIENT
  Age: 38 Year
  Sex: Female

DRUGS (3)
  1. RITUXAN [Suspect]
     Indication: B-CELL LYMPHOMA
     Route: 042
  2. RITUXAN [Suspect]
     Indication: RETROPERITONEAL LYMPHADENOPATHY
  3. ALLOPURINOL [Suspect]
     Indication: TUMOUR LYSIS SYNDROME
     Route: 065

REACTIONS (4)
  - Arthropathy [Recovered/Resolved]
  - Pyrexia [Unknown]
  - Rash [Recovering/Resolving]
  - Serum sickness [Unknown]
